FAERS Safety Report 7435837-8 (Version None)
Quarter: 2011Q2

REPORT INFORMATION
  Report Type: 
  Country: None (occurrence: None)
  Receive Date: 20110425
  Receipt Date: 20110413
  Transmission Date: 20111010
  Serious: Yes (Hospitalization)
  Sender: FDA-Public Use
  Company Number: US-ELI_LILLY_AND_COMPANY-US201102007520

PATIENT
  Sex: Male
  Weight: 86.621 kg

DRUGS (9)
  1. LISINOPRIL [Concomitant]
     Dosage: 2.5 MG, QD
     Route: 048
  2. ZYPREXA [Suspect]
     Dosage: 25 MG, DAILY (1/D)
     Route: 048
     Dates: start: 20110131, end: 20110203
  3. LITHIUM [Concomitant]
     Dosage: 900 MG, 2/D
     Route: 048
     Dates: start: 20110103, end: 20110225
  4. PROTONIX [Concomitant]
     Dosage: 20 MG, QD
     Route: 048
  5. ZYPREXA [Suspect]
     Dosage: 30 MG, DAILY (1/D)
     Route: 048
     Dates: start: 20110204
  6. ZYPREXA ZYDIS [Suspect]
     Indication: BIPOLAR DISORDER
     Dosage: 10 MG, BID
  7. RANITIDINE [Concomitant]
     Dosage: 150 MG, BID
     Route: 048
  8. DEPAKOTE [Concomitant]
     Dosage: 2 G, DAILY (1/D)
     Route: 048
     Dates: start: 20110217
  9. ZYPREXA [Suspect]
     Indication: BIPOLAR DISORDER
     Dosage: 20 MG, DAILY (1/D)
     Route: 048
     Dates: start: 20110103, end: 20110130

REACTIONS (5)
  - DRUG INTERACTION [None]
  - BIPOLAR DISORDER [None]
  - CONFUSIONAL STATE [None]
  - BLOOD BILIRUBIN INCREASED [None]
  - OVERDOSE [None]
